FAERS Safety Report 10206200 (Version 1)
Quarter: 2014Q2

REPORT INFORMATION
  Report Type: Spontaneous
  Country: US (occurrence: US)
  Receive Date: 20140530
  Receipt Date: 20140530
  Transmission Date: 20141212
  Serious: Yes (Hospitalization, Other)
  Sender: FDA-Public Use
  Company Number: US-ROCHE-1407486

PATIENT
  Age: 38 Year
  Sex: Male

DRUGS (1)
  1. XOLAIR [Suspect]
     Indication: ASTHMA
     Route: 065
     Dates: start: 20140507

REACTIONS (6)
  - Pyrexia [Recovering/Resolving]
  - Chills [Recovering/Resolving]
  - Lactic acidosis [Not Recovered/Not Resolved]
  - Dyspnoea [Unknown]
  - CD4 lymphocytes decreased [Unknown]
  - Acquired immunodeficiency syndrome [Unknown]
